FAERS Safety Report 4567690-4 (Version None)
Quarter: 2005Q1

REPORT INFORMATION
  Report Type: 
  Country: None (occurrence: None)
  Receive Date: 20050202
  Receipt Date: 20050120
  Transmission Date: 20050727
  Serious: Yes (Hospitalization)
  Sender: FDA-Public Use
  Company Number: US-JNJFOC-20040901084

PATIENT
  Sex: Female
  Weight: 58.97 kg

DRUGS (9)
  1. REMICADE [Suspect]
     Indication: CROHN'S DISEASE
     Route: 042
  2. IMURAN [Suspect]
     Indication: CROHN'S DISEASE
  3. SINGULAIR [Concomitant]
     Indication: ASTHMA
  4. ADVAIR DISKUS 100/50 [Concomitant]
  5. ADVAIR DISKUS 100/50 [Concomitant]
     Indication: ASTHMA
  6. FLONASE [Concomitant]
     Indication: ASTHMA
  7. AZMACORT [Concomitant]
  8. BUSPAR [Concomitant]
  9. PROZAC [Concomitant]

REACTIONS (14)
  - ANAEMIA [None]
  - CELLULITIS [None]
  - COLONIC STENOSIS [None]
  - CROHN'S DISEASE [None]
  - DYSSTASIA [None]
  - EAR INFECTION [None]
  - FAECALOMA [None]
  - IMMUNOSUPPRESSION [None]
  - NAUSEA [None]
  - PSORIASIS [None]
  - PYREXIA [None]
  - STAPHYLOCOCCAL INFECTION [None]
  - UTERINE DISORDER [None]
  - VITILIGO [None]
